FAERS Safety Report 18402041 (Version 1)
Quarter: 2020Q4

REPORT INFORMATION
  Report Type: Spontaneous
  Country: AU (occurrence: AU)
  Receive Date: 20201020
  Receipt Date: 20201020
  Transmission Date: 20210114
  Serious: Yes (Hospitalization, Other)
  Sender: FDA-Public Use
  Company Number: AU-ADVANZ PHARMA -GSH201807-002708

PATIENT

DRUGS (4)
  1. PHENOXYBENZAMINE [Suspect]
     Active Substance: PHENOXYBENZAMINE
     Indication: HYPERTENSION
     Dosage: 20 MG, BID
  2. METYROSINE [Suspect]
     Active Substance: METYROSINE
     Indication: HYPERTENSION
     Dosage: 250 MG, BID
  3. PRUCALOPRIDE [Suspect]
     Active Substance: PRUCALOPRIDE
     Indication: INTESTINAL PSEUDO-OBSTRUCTION
     Dosage: UNK
  4. ERYTHROMYCIN. [Suspect]
     Active Substance: ERYTHROMYCIN
     Indication: INTESTINAL PSEUDO-OBSTRUCTION
     Dosage: UNK

REACTIONS (4)
  - Orthostatic hypotension [Unknown]
  - Drug ineffective [Unknown]
  - Condition aggravated [Unknown]
  - Intestinal pseudo-obstruction [Unknown]
